FAERS Safety Report 5349102-6 (Version None)
Quarter: 2007Q2

REPORT INFORMATION
  Report Type: 
  Country: None (occurrence: None)
  Receive Date: 20070607
  Receipt Date: 20070529
  Transmission Date: 20071010
  Serious: Yes (Other)
  Sender: FDA-Public Use
  Company Number: PHEH2007US08187

PATIENT
  Age: 73 Year
  Sex: Female

DRUGS (1)
  1. LAMISIL AT ATHLETE'S FOOT CREAM (NCH) [Suspect]
     Indication: TINEA PEDIS
     Route: 061
     Dates: start: 20070519, end: 20070527

REACTIONS (5)
  - COUGH [None]
  - DRUG INEFFECTIVE [None]
  - DYSPNOEA [None]
  - FUNGAL INFECTION [None]
  - SNEEZING [None]
